FAERS Safety Report 6203927-3 (Version None)
Quarter: 2009Q2

REPORT INFORMATION
  Report Type: 
  Country: None (occurrence: None)
  Receive Date: 20090527
  Receipt Date: 20090515
  Transmission Date: 20091009
  Serious: Yes (Death)
  Sender: FDA-Public Use
  Company Number: A0785920A

PATIENT
  Age: 46 Year
  Sex: Male
  Weight: 107.7 kg

DRUGS (1)
  1. AVANDAMET [Suspect]
     Route: 048
     Dates: start: 20061201, end: 20070814

REACTIONS (1)
  - HYPERTENSIVE HEART DISEASE [None]
